FAERS Safety Report 8905763 (Version 1)
Quarter: 2012Q4

REPORT INFORMATION
  Report Type: 
  Country: IT (occurrence: IT)
  Receive Date: 20121113
  Receipt Date: 20121113
  Transmission Date: 20130627
  Serious: Yes (Hospitalization)
  Sender: FDA-Public Use
  Company Number: IT-TEVA-368205ISR

PATIENT
  Age: 91 Year
  Sex: Male

DRUGS (2)
  1. CEFTRIAXONE [Suspect]
     Indication: RESPIRATORY TRACT INFECTION
     Dosage: 1 Gram Daily;
     Route: 030
     Dates: start: 20120802, end: 20120805
  2. GAVISCON ADVANCE [Concomitant]
     Dosage: sodium alginate 1000 mg/ potassium bicarbonate 200 mg
     Route: 048

REACTIONS (1)
  - Monoparesis [Recovered/Resolved]
